FAERS Safety Report 8849154 (Version 2)
Quarter: 2013Q2

REPORT INFORMATION
  Report Type: Spontaneous
  Country: US (occurrence: None)
  Receive Date: 20120426
  Receipt Date: 20120703
  Transmission Date: 20140414
  Serious: No
  Sender: FDA-Public Use
  Company Number: PHEH2012US004835

PATIENT
  Age: 51 Year
  Sex: Female

DRUGS (8)
  1. GILENYA [Suspect]
     Indication: MULTIPLE SCLEROSIS
     Route: 048
     Dates: start: 20120224
  2. FENTANYL (FENTANYL) [Concomitant]
  3. PROVIGIL (MODAFINIL) [Concomitant]
  4. PILOCARPINE (PILOCARPINE) [Concomitant]
  5. OMEPRAZOLE (OMEPRAZOLE) [Concomitant]
  6. LEPONEX ^WANDER: (CLOZAPINE) [Concomitant]
  7. PLAVIX (CLOPIDOGREL SULFATE) [Concomitant]
  8. TYLENOL (PARACETAMOL) [Concomitant]

REACTIONS (2)
  - Fatigue [None]
  - Nausea [None]
